FAERS Safety Report 17733653 (Version 2)
Quarter: 2020Q3

REPORT INFORMATION
  Report Type: Spontaneous
  Country: DE (occurrence: DE)
  Receive Date: 20200501
  Receipt Date: 20200706
  Transmission Date: 20201102
  Serious: Yes (Other)
  Sender: FDA-Public Use
  Company Number: DE-ASTELLAS-2020US014958

PATIENT
  Sex: Male

DRUGS (3)
  1. XTANDI [Suspect]
     Active Substance: ENZALUTAMIDE
     Indication: PRODUCT USED FOR UNKNOWN INDICATION
     Dosage: UNK, UNKNOWN FREQ.
     Route: 065
  2. TRENANTONE [Concomitant]
     Active Substance: LEUPROLIDE ACETATE
     Indication: PRODUCT USED FOR UNKNOWN INDICATION
     Dosage: UNK UNK, EVERY QUARTER YEAR
     Route: 065
  3. XTANDI [Suspect]
     Active Substance: ENZALUTAMIDE
     Dosage: UNK, UNKNOWN FREQ.
     Route: 065

REACTIONS (10)
  - Pyuria [Unknown]
  - Dizziness [Unknown]
  - Incontinence [Unknown]
  - Gastrointestinal pain [Unknown]
  - Cystitis [Unknown]
  - Malignant neoplasm progression [Unknown]
  - Blood urine present [Unknown]
  - Restless legs syndrome [Unknown]
  - Arthralgia [Unknown]
  - Urethral pain [Unknown]
